FAERS Safety Report 7521140-4 (Version None)
Quarter: 2011Q2

REPORT INFORMATION
  Report Type: 
  Country: None (occurrence: None)
  Receive Date: 20110603
  Receipt Date: 20101207
  Transmission Date: 20111010
  Serious: Yes (Death)
  Sender: FDA-Public Use
  Company Number: JP-BAYER-2010-000016

PATIENT
  Age: 71 Year
  Sex: Male
  Weight: 68 kg

DRUGS (6)
  1. FLUOROURACIL [Concomitant]
     Indication: HEPATIC NEOPLASM MALIGNANT
     Dosage: 250 MG, QD
     Route: 013
     Dates: start: 20101012, end: 20101014
  2. NEXAVAR [Suspect]
     Indication: HEPATIC NEOPLASM MALIGNANT
     Dosage: 400 MG, QD
     Route: 048
     Dates: start: 20101027, end: 20101125
  3. URSO 250 [Concomitant]
     Indication: HEPATIC FUNCTION ABNORMAL
     Dosage: 600 MG, QD
     Route: 048
     Dates: end: 20101125
  4. SELBEX [Concomitant]
     Indication: GASTRITIS PROPHYLAXIS
     Dosage: 1.5 G, QD
     Route: 048
     Dates: end: 20101125
  5. NORVASC [Concomitant]
     Indication: HYPERTENSION
     Dosage: 5 MG, QD
     Route: 048
     Dates: end: 20101125
  6. CISPLATIN [Concomitant]
     Indication: HEPATIC NEOPLASM MALIGNANT
     Dosage: 10 MG, QD
     Route: 013
     Dates: start: 20101012, end: 20101014

REACTIONS (2)
  - DROWNING [None]
  - LOSS OF CONSCIOUSNESS [None]
